FAERS Safety Report 9438132 (Version 1)
Quarter: 2013Q3

REPORT INFORMATION
  Report Type: Spontaneous
  Country: US (occurrence: US)
  Receive Date: 20130802
  Receipt Date: 20130802
  Transmission Date: 20140515
  Serious: No
  Sender: FDA-Public Use
  Company Number: US-BRISTOL-MYERS SQUIBB COMPANY-16839599

PATIENT
  Age: 66 Year
  Sex: Female

DRUGS (4)
  1. COUMADIN [Suspect]
     Indication: THROMBOSIS
     Dates: start: 201207
  2. HEPARIN [Suspect]
  3. LISINOPRIL [Concomitant]
  4. DITROPAN [Concomitant]

REACTIONS (4)
  - Hypotension [Unknown]
  - International normalised ratio increased [Unknown]
  - Myalgia [Unknown]
  - Muscular weakness [Unknown]
